FAERS Safety Report 12296137 (Version 2)
Quarter: 2016Q3

REPORT INFORMATION
  Report Type: Report from Study
  Country: US (occurrence: US)
  Receive Date: 20160422
  Receipt Date: 20160717
  Transmission Date: 20161109
  Serious: No
  Sender: FDA-Public Use
  Company Number: PHEH2016US009755

PATIENT
  Age: 70 Year
  Sex: Female

DRUGS (3)
  1. COSENTYX [Suspect]
     Active Substance: SECUKINUMAB
     Dosage: 150 MG, UNK
     Route: 042
  2. COSENTYX [Suspect]
     Active Substance: SECUKINUMAB
     Dosage: DOUBLE DOSE
     Route: 065
  3. COSENTYX [Suspect]
     Active Substance: SECUKINUMAB
     Indication: RASH
     Dosage: UNK
     Route: 058
     Dates: start: 20150404

REACTIONS (4)
  - Incorrect route of drug administration [Unknown]
  - Product use issue [Unknown]
  - Rash [Not Recovered/Not Resolved]
  - Incorrect dose administered [Unknown]

NARRATIVE: CASE EVENT DATE: 20160101
